FAERS Safety Report 6389664-3 (Version None)
Quarter: 2009Q4

REPORT INFORMATION
  Report Type: 
  Country: None (occurrence: None)
  Receive Date: 20091006
  Receipt Date: 20091001
  Transmission Date: 20100525
  Serious: Yes (Other)
  Sender: FDA-Public Use
  Company Number: GB-BRISTOL-MYERS SQUIBB COMPANY-14803126

PATIENT
  Age: 31 Year
  Sex: Male

DRUGS (6)
  1. ARIPIPRAZOLE [Suspect]
     Indication: SCHIZOPHRENIA
     Route: 048
     Dates: start: 20090820, end: 20090903
  2. CLOZAPINE [Concomitant]
     Dates: start: 20040101
  3. MAALOX [Concomitant]
  4. OMEPRAZOLE [Concomitant]
  5. SIMVASTATIN [Concomitant]
  6. SULPIRIDE [Concomitant]
     Dates: start: 20090401, end: 20090801

REACTIONS (4)
  - ANXIETY [None]
  - HEADACHE [None]
  - MENTAL IMPAIRMENT [None]
  - NON-CARDIAC CHEST PAIN [None]
